FAERS Safety Report 17312865 (Version 1)
Quarter: 2020Q1

REPORT INFORMATION
  Report Type: Spontaneous
  Country: US (occurrence: US)
  Receive Date: 20200107
  Receipt Date: 20200107
  Transmission Date: 20200409
  Serious: No
  Sender: FDA-Public Use
  Company Number: None

PATIENT
  Age: 55 Year
  Sex: Male
  Weight: 110 kg

DRUGS (1)
  1. FENTANYL (FENTANYL CITRATE 50MCG/ML INJ) [Suspect]
     Active Substance: FENTANYL CITRATE
     Indication: SURGERY
     Route: 042
     Dates: start: 20190912, end: 20190912

REACTIONS (4)
  - Bradycardia [None]
  - Hypotension [None]
  - Respiratory depression [None]
  - Sedation [None]

NARRATIVE: CASE EVENT DATE: 20190912
